FAERS Safety Report 21644410 (Version 1)
Quarter: 2022Q4

REPORT INFORMATION
  Report Type: Spontaneous
  Country: BR (occurrence: BR)
  Receive Date: 20221125
  Receipt Date: 20221125
  Transmission Date: 20230113
  Serious: Yes (Other)
  Sender: FDA-Public Use
  Company Number: BR-JNJFOC-20221133675

PATIENT
  Sex: Female

DRUGS (1)
  1. SPRAVATO [Suspect]
     Active Substance: ESKETAMINE
     Indication: Product used for unknown indication

REACTIONS (6)
  - Therapeutic response decreased [Unknown]
  - Heavy menstrual bleeding [Unknown]
  - Myopia [Not Recovered/Not Resolved]
  - Weight increased [Unknown]
  - Dysmenorrhoea [Unknown]
  - Feeling abnormal [Unknown]
